FAERS Safety Report 8321499-4 (Version None)
Quarter: 2012Q2

REPORT INFORMATION
  Report Type: 
  Country: None (occurrence: None)
  Receive Date: 20120430
  Receipt Date: 20120430
  Transmission Date: 20120825
  Serious: No
  Sender: FDA-Public Use
  Company Number: None

PATIENT
  Age: 46 Year
  Sex: Female
  Weight: 62.142 kg

DRUGS (1)
  1. PROTOPIC [Suspect]
     Indication: EYELID PAIN
     Dates: start: 20120425, end: 20120425

REACTIONS (4)
  - EYE PAIN [None]
  - DRUG HYPERSENSITIVITY [None]
  - EYELID PAIN [None]
  - DRUG INEFFECTIVE [None]
